FAERS Safety Report 11742369 (Version 3)
Quarter: 2015Q4

REPORT INFORMATION
  Report Type: Report from Study
  Country: US (occurrence: US)
  Receive Date: 20151116
  Receipt Date: 20151207
  Transmission Date: 20160304
  Serious: Yes (Hospitalization)
  Sender: FDA-Public Use
  Company Number: US-GILEAD-2015-0182215

PATIENT
  Age: 70 Year
  Sex: Female

DRUGS (13)
  1. SIMVASTATIN. [Concomitant]
     Active Substance: SIMVASTATIN
  2. LASIX [Concomitant]
     Active Substance: FUROSEMIDE
  3. POTASSIUM [Concomitant]
     Active Substance: POTASSIUM
  4. PROCARDIA [Concomitant]
     Active Substance: NIFEDIPINE
  5. ADCIRCA [Concomitant]
     Active Substance: TADALAFIL
  6. FOLIC ACID. [Concomitant]
     Active Substance: FOLIC ACID
  7. ZITHROMAX [Concomitant]
     Active Substance: AZITHROMYCIN DIHYDRATE
  8. IMDUR [Concomitant]
     Active Substance: ISOSORBIDE MONONITRATE
  9. AMBRISENTAN [Suspect]
     Active Substance: AMBRISENTAN
     Indication: PULMONARY ARTERIAL HYPERTENSION
     Dosage: 10 MG, QD
     Route: 065
     Dates: start: 20140523
  10. SPIRIVA [Concomitant]
     Active Substance: TIOTROPIUM BROMIDE MONOHYDRATE
  11. METOPROLOL [Concomitant]
     Active Substance: METOPROLOL
  12. DIGOXIN. [Concomitant]
     Active Substance: DIGOXIN
  13. PEPCID [Concomitant]
     Active Substance: FAMOTIDINE

REACTIONS (2)
  - Cardiac valve disease [Not Recovered/Not Resolved]
  - Malaise [Unknown]
